FAERS Safety Report 22274748 (Version 1)
Quarter: 2023Q2

REPORT INFORMATION
  Report Type: Report from Study
  Country: US (occurrence: US)
  Receive Date: 20230502
  Receipt Date: 20230502
  Transmission Date: 20230722
  Serious: Yes (Other)
  Sender: FDA-Public Use
  Company Number: US-IMMUNOCORE, LTD.-2021-IMC-000110

PATIENT
  Age: 75 Year
  Sex: Male
  Weight: 108.3 kg

DRUGS (16)
  1. TEBENTAFUSP [Suspect]
     Active Substance: TEBENTAFUSP
     Indication: Uveal melanoma
     Dosage: SINGLE
     Dates: start: 20211008
  2. TEBENTAFUSP [Suspect]
     Active Substance: TEBENTAFUSP
     Dosage: 30 MICROGRAM, SINGLE, C1D8
     Dates: start: 20211015, end: 20211015
  3. TEBENTAFUSP [Suspect]
     Active Substance: TEBENTAFUSP
     Dosage: UNK, C2D8
     Dates: start: 20211105
  4. DIPHENHYDRAMINE [Concomitant]
     Active Substance: DIPHENHYDRAMINE
     Indication: Premedication
     Dosage: 50 MILLIGRAM, PRN ONE TIME
     Route: 042
     Dates: start: 20211014, end: 20211016
  5. ONDANSETRON [Concomitant]
     Active Substance: ONDANSETRON
     Indication: Premedication
     Dosage: 4 MILLIGRAM (4MG/2ML), SINGLE
     Route: 042
     Dates: start: 20211015, end: 20211015
  6. HYDROCORTISONE SODIUM SUCCINATE [Concomitant]
     Active Substance: HYDROCORTISONE SODIUM SUCCINATE
     Indication: Product used for unknown indication
     Dosage: 100 MILLIGRAM, Q6HOURS
     Route: 042
     Dates: start: 20211014, end: 20211015
  7. SIMETHICONE (DIMETHICONE) [Concomitant]
     Active Substance: DIMETHICONE
     Indication: Product used for unknown indication
     Dosage: 125 MILLIGRAM, QD
     Route: 048
     Dates: start: 20210120
  8. ROSUVASTATIN [Concomitant]
     Active Substance: ROSUVASTATIN
     Indication: Product used for unknown indication
     Dosage: 20 MILLIGRAM, QD AT BED TIME
     Route: 048
     Dates: start: 20210414
  9. PROPYLENE GLYCOL [Concomitant]
     Active Substance: PROPYLENE GLYCOL
     Indication: Product used for unknown indication
     Dosage: 1 DROP, QD LEFT EYE ONLY
     Route: 047
  10. ALIGN [Concomitant]
     Active Substance: BIFIDOBACTERIUM LONGUM SUBSP. INFANTIS
     Indication: Product used for unknown indication
     Dosage: 40 MILLIGRAM, QD
     Route: 048
  11. PLANTAGO AFRA SEED [Concomitant]
     Active Substance: PLANTAGO AFRA SEED
     Indication: Product used for unknown indication
     Dosage: 2 CAPS DAILY 0.52 GRAM  QD
     Route: 048
  12. ASPIRIN [Concomitant]
     Active Substance: ASPIRIN
     Indication: Product used for unknown indication
     Dosage: 81 MILLIGRAM, QD
     Route: 048
  13. TYLENOL [Concomitant]
     Active Substance: ACETAMINOPHEN
     Indication: Product used for unknown indication
     Dosage: 1000 MILLIGRAM, Q6H
     Route: 048
     Dates: start: 20211014, end: 20211015
  14. SODIUM CHLORIDE [Concomitant]
     Active Substance: SODIUM CHLORIDE
     Indication: Product used for unknown indication
     Dosage: 1000 ML/HR
     Route: 042
     Dates: start: 20211014, end: 20211015
  15. SODIUM PHOSPHATES [SODIUM PHOSPHATE] [Concomitant]
     Indication: Product used for unknown indication
     Dosage: 30 MILLIMOLE IN NACL0.9% 260ML IVPB, 1000ML ONE TIME
     Route: 042
     Dates: start: 20211014, end: 20211015
  16. AMITRIPTYLINE [Concomitant]
     Active Substance: AMITRIPTYLINE
     Indication: Product used for unknown indication
     Dosage: 50 MILLIGRAM (2 25MG TABLETS), QD HS
     Route: 048
     Dates: start: 20210414

REACTIONS (9)
  - Deep vein thrombosis [Recovered/Resolved]
  - Cytokine release syndrome [Recovering/Resolving]
  - Tremor [Unknown]
  - Back pain [Recovered/Resolved]
  - Urinary retention [Unknown]
  - Flushing [Unknown]
  - Chills [Unknown]
  - Pyrexia [Unknown]
  - Vomiting [Unknown]

NARRATIVE: CASE EVENT DATE: 20211015
